FAERS Safety Report 5965168-4 (Version None)
Quarter: 2008Q4

REPORT INFORMATION
  Report Type: 
  Country: None (occurrence: None)
  Receive Date: 20081121
  Receipt Date: 20081121
  Transmission Date: 20090506
  Serious: Yes (Hospitalization)
  Sender: FDA-Public Use
  Company Number: None

PATIENT
  Age: 43 Year
  Sex: Male
  Weight: 72 kg

DRUGS (3)
  1. BEVACIZUMAB 10MG/KG GENENTECH [Suspect]
     Indication: PANCREATIC CARCINOMA METASTATIC
     Dosage: 680MG Q2WKS IV
     Route: 042
     Dates: start: 20080531, end: 20081106
  2. GEMCITABINE HCL [Concomitant]
  3. DOCETAXEL [Concomitant]

REACTIONS (1)
  - VASCULAR PSEUDOANEURYSM [None]
